FAERS Safety Report 25822033 (Version 1)
Quarter: 2025Q3

REPORT INFORMATION
  Report Type: Spontaneous
  Country: US (occurrence: US)
  Receive Date: 20250919
  Receipt Date: 20250919
  Transmission Date: 20251020
  Serious: No
  Sender: GALDERMA
  Company Number: US-GALDERMA-US2025016205

PATIENT

DRUGS (2)
  1. NEMLUVIO [Suspect]
     Active Substance: NEMOLIZUMAB-ILTO
     Indication: Dermatitis atopic
     Route: 058
     Dates: start: 20250705, end: 20250705
  2. NEMLUVIO [Suspect]
     Active Substance: NEMOLIZUMAB-ILTO
     Route: 058
     Dates: start: 20250805, end: 20250805

REACTIONS (9)
  - Rash erythematous [Unknown]
  - Dermatitis [Unknown]
  - Skin texture abnormal [Unknown]
  - Eczema [Unknown]
  - Eczema eyelids [Unknown]
  - Swelling of eyelid [Unknown]
  - Visual impairment [Unknown]
  - Dermatitis atopic [Unknown]
  - Skin weeping [Unknown]

NARRATIVE: CASE EVENT DATE: 20250701
